FAERS Safety Report 4487641-0 (Version None)
Quarter: 2004Q4

REPORT INFORMATION
  Report Type: 
  Country: None (occurrence: None)
  Receive Date: 20041027
  Receipt Date: 20041027
  Transmission Date: 20050328
  Serious: Yes (Other)
  Sender: FDA-Public Use
  Company Number: None

PATIENT
  Sex: Male

DRUGS (4)
  1. DOLOBID [Suspect]
     Indication: ARTHRITIS
     Dosage: 250 MG PO BID
     Route: 048
     Dates: start: 20040701
  2. PROVENTIL [Suspect]
     Indication: ASTHMA
     Dosage: 1 VIAL Q 4 HRS PRN
     Dates: start: 19940801
  3. TRISULATE [Concomitant]
  4. ALBUTEROL NEB SOL [Concomitant]

REACTIONS (4)
  - CONDITION AGGRAVATED [None]
  - DRUG INEFFECTIVE [None]
  - PHARMACEUTICAL PRODUCT COMPLAINT [None]
  - WHEEZING [None]
